FAERS Safety Report 9970296 (Version 2)
Quarter: 2014Q3

REPORT INFORMATION
  Report Type: Spontaneous
  Country: US (occurrence: None)
  Receive Date: 20140304
  Receipt Date: 20140701
  Transmission Date: 20150326
  Serious: Yes (Hospitalization, Other)
  Sender: FDA-Public Use
  Company Number: 2014-US-002211

PATIENT
  Age: 67 Year
  Sex: Male

DRUGS (1)
  1. XYREM [Suspect]
     Active Substance: SODIUM OXYBATE
     Indication: PRODUCT USED FOR UNKNOWN INDICATION
     Route: 048
     Dates: start: 200308, end: 2003

REACTIONS (4)
  - Intervertebral disc operation [None]
  - Pain [None]
  - Intervertebral disc disorder [None]
  - Paraesthesia [None]

NARRATIVE: CASE EVENT DATE: 20140219
